FAERS Safety Report 9104097 (Version 1)
Quarter: 2013Q1

REPORT INFORMATION
  Report Type: Spontaneous
  Country: US (occurrence: US)
  Receive Date: 20130219
  Receipt Date: 20130219
  Transmission Date: 20140127
  Serious: Yes (Other)
  Sender: FDA-Public Use
  Company Number: US-SANOFI-AVENTIS-2012SA085261

PATIENT
  Age: 62 Year
  Sex: Female
  Weight: 82 kg

DRUGS (2)
  1. GLYBURIDE [Suspect]
     Route: 065
  2. METFORMIN [Suspect]
     Route: 065

REACTIONS (2)
  - Hypoglycaemia [Unknown]
  - Hyperglycaemia [Unknown]
